FAERS Safety Report 24411382 (Version 1)
Quarter: 2024Q4

REPORT INFORMATION
  Report Type: Report from Study
  Country: US (occurrence: US)
  Receive Date: 20241008
  Receipt Date: 20241008
  Transmission Date: 20250115
  Serious: No
  Sender: AGIOS PHARMACEUTICALS
  Company Number: US-AGIOS-2409US03905

PATIENT
  Sex: Female
  Weight: 70.295 kg

DRUGS (1)
  1. MITAPIVAT [Suspect]
     Active Substance: MITAPIVAT
     Indication: Pyruvate kinase deficiency anaemia
     Dosage: 20 MILLIGRAM, BID
     Route: 048
     Dates: start: 20240503

REACTIONS (1)
  - Fatigue [Not Recovered/Not Resolved]
